FAERS Safety Report 4552277-X (Version None)
Quarter: 2005Q1

REPORT INFORMATION
  Report Type: 
  Country: None (occurrence: None)
  Receive Date: 20050112
  Receipt Date: 20050112
  Transmission Date: 20050727
  Serious: Yes (Other)
  Sender: FDA-Public Use
  Company Number: None

PATIENT
  Sex: Female
  Weight: 72.5755 kg

DRUGS (1)
  1. ARIMIDEX [Suspect]
     Indication: BREAST CANCER
     Dosage: 1 MG  1 PER DAY ORAL
     Route: 048
     Dates: start: 20021103, end: 20050111

REACTIONS (2)
  - BONE DENSITY DECREASED [None]
  - TOOTH LOSS [None]
